FAERS Safety Report 21989585 (Version 1)
Quarter: 2023Q1

REPORT INFORMATION
  Report Type: Spontaneous
  Country: US (occurrence: US)
  Receive Date: 20230214
  Receipt Date: 20230214
  Transmission Date: 20230418
  Serious: Yes (Other)
  Sender: FDA-Public Use
  Company Number: US-MYLANLABS-2023M1016248

PATIENT
  Age: 56 Year
  Sex: Male

DRUGS (20)
  1. DOXORUBICIN [Suspect]
     Active Substance: DOXORUBICIN
     Indication: Diffuse large B-cell lymphoma stage IV
     Dosage: UNK UNK, CYCLE (AS A PART OF R-CHOP REGIMEN)
     Route: 065
  2. PREDNISONE [Suspect]
     Active Substance: PREDNISONE
     Indication: Diffuse large B-cell lymphoma stage IV
     Dosage: UNK UNK, CYCLE (AS A PART OF R-CHOP REGIMEN)
     Route: 065
  3. CYTARABINE [Suspect]
     Active Substance: CYTARABINE
     Indication: Diffuse large B-cell lymphoma stage IV
     Dosage: UNK UNK, CYCLE (AS A PART OF RDHAX REGIMEN)
     Route: 065
  4. OXALIPLATIN [Suspect]
     Active Substance: OXALIPLATIN
     Indication: Diffuse large B-cell lymphoma stage IV
     Dosage: UNK UNK, CYCLE (AS A PART OF RDHAX REGIMEN)
     Route: 065
  5. DEXAMETHASONE [Suspect]
     Active Substance: DEXAMETHASONE
     Indication: Diffuse large B-cell lymphoma stage IV
     Dosage: UNK, CYCLE (AS A PART OF RDHAX REGIMEN)
     Route: 065
  6. DEXAMETHASONE [Suspect]
     Active Substance: DEXAMETHASONE
     Indication: Immune effector cell-associated neurotoxicity syndrome
     Dosage: UNK
     Route: 065
  7. AXICABTAGENE CILOLEUCEL [Suspect]
     Active Substance: AXICABTAGENE CILOLEUCEL
     Indication: Diffuse large B-cell lymphoma stage IV
     Dosage: UNK UNK, CYCLE (THIRD LINE THERAPY)
     Route: 065
  8. BENDAMUSTINE [Suspect]
     Active Substance: BENDAMUSTINE
     Indication: Diffuse large B-cell lymphoma stage IV
     Dosage: UNK UNK, CYCLE (THIRD LINE THERAPY)
     Route: 065
  9. CYCLOPHOSPHAMIDE [Suspect]
     Active Substance: CYCLOPHOSPHAMIDE
     Indication: Diffuse large B-cell lymphoma stage IV
     Dosage: UNK UNK, CYCLE (AS A PART OF R-CHOP REGIMEN)
     Route: 065
  10. POLATUZUMAB VEDOTIN [Suspect]
     Active Substance: POLATUZUMAB VEDOTIN
     Indication: Diffuse large B-cell lymphoma stage IV
     Dosage: UNK UNK, CYCLE (THIRD LINE THERAPY)
     Route: 065
  11. ONCOVIN [Suspect]
     Active Substance: VINCRISTINE SULFATE
     Indication: Diffuse large B-cell lymphoma stage IV
     Dosage: UNK UNK, CYCLE (AS A PART OF R-CHOP REGIMEN)
     Route: 065
  12. RITUXIMAB [Suspect]
     Active Substance: RITUXIMAB
     Indication: Diffuse large B-cell lymphoma stage IV
     Dosage: UNK UNK, CYCLE (DURING R-CHOP REGIMEN)
     Route: 065
  13. RITUXIMAB [Suspect]
     Active Substance: RITUXIMAB
     Dosage: UNK UNK, CYCLE (DURING R-DHAX REGIMEN)
     Route: 065
  14. RITUXIMAB [Suspect]
     Active Substance: RITUXIMAB
     Dosage: UNK UNK, CYCLE (THIRD LINE THERAPY)
     Route: 065
  15. TOCILIZUMAB [Concomitant]
     Active Substance: TOCILIZUMAB
     Indication: Cytokine release syndrome
     Dosage: UNK
     Route: 065
  16. ANAKINRA [Concomitant]
     Active Substance: ANAKINRA
     Indication: Immune effector cell-associated neurotoxicity syndrome
     Dosage: UNK
     Route: 065
  17. BRENTUXIMAB VEDOTIN [Concomitant]
     Active Substance: BRENTUXIMAB VEDOTIN
     Indication: Diffuse large B-cell lymphoma stage IV
     Dosage: UNK UNK, CYCLE
     Route: 065
  18. BRENTUXIMAB VEDOTIN [Concomitant]
     Active Substance: BRENTUXIMAB VEDOTIN
     Indication: Hodgkin^s disease
  19. NIVOLUMAB [Concomitant]
     Active Substance: NIVOLUMAB
     Indication: Diffuse large B-cell lymphoma stage IV
     Dosage: UNK UNK, CYCLE
     Route: 065
  20. NIVOLUMAB [Concomitant]
     Active Substance: NIVOLUMAB
     Indication: Hodgkin^s disease

REACTIONS (2)
  - Drug ineffective [Unknown]
  - Disease progression [Unknown]
